FAERS Safety Report 10874033 (Version 2)
Quarter: 2015Q1

REPORT INFORMATION
  Report Type: Report from Study
  Country: US (occurrence: US)
  Receive Date: 20150227
  Receipt Date: 20150312
  Transmission Date: 20150721
  Serious: Yes (Other)
  Sender: FDA-Public Use
  Company Number: US-SA-2015SA022933

PATIENT
  Age: 52 Year
  Sex: Female

DRUGS (2)
  1. AUBAGIO [Suspect]
     Active Substance: TERIFLUNOMIDE
     Indication: MULTIPLE SCLEROSIS
     Route: 048
     Dates: start: 20150202, end: 20150216
  2. AUBAGIO [Suspect]
     Active Substance: TERIFLUNOMIDE
     Indication: MULTIPLE SCLEROSIS
     Route: 048
     Dates: start: 201501

REACTIONS (12)
  - Dyspnoea [Recovering/Resolving]
  - Throat irritation [Recovering/Resolving]
  - Stomatitis [Unknown]
  - JC virus infection [Unknown]
  - Cough [Recovering/Resolving]
  - Pruritus [Recovering/Resolving]
  - Fungal infection [Not Recovered/Not Resolved]
  - Feeling abnormal [Unknown]
  - Hypersensitivity [Recovering/Resolving]
  - Paraesthesia [Recovering/Resolving]
  - Pruritus generalised [Recovering/Resolving]
  - Oral mucosal erythema [Unknown]

NARRATIVE: CASE EVENT DATE: 2015
